FAERS Safety Report 5154624-7 (Version None)
Quarter: 2006Q4

REPORT INFORMATION
  Report Type: 
  Country: None (occurrence: None)
  Receive Date: 20061113
  Receipt Date: 20061031
  Transmission Date: 20070319
  Serious: Yes (Hospitalization)
  Sender: FDA-Public Use
  Company Number: 2006121609

PATIENT
  Age: 86 Year
  Sex: Female

DRUGS (6)
  1. DILANTIN [Suspect]
     Indication: EPILEPSY
     Dosage: 300 MG (100 MG, 3 IN 1 D), ORAL
     Route: 048
     Dates: start: 20040101
  2. GLYBURIDE [Concomitant]
  3. PLAVIX [Concomitant]
  4. MONOPRIL [Concomitant]
  5. NOVOLIN 70/30 [Concomitant]
  6. COLACE             (DOCUSATE SODIUM) [Concomitant]

REACTIONS (2)
  - DRUG LEVEL INCREASED [None]
  - WRONG TECHNIQUE IN DRUG USAGE PROCESS [None]
